FAERS Safety Report 17120569 (Version 3)
Quarter: 2020Q1

REPORT INFORMATION
  Report Type: Spontaneous
  Country: US (occurrence: US)
  Receive Date: 20191206
  Receipt Date: 20200122
  Transmission Date: 20200409
  Serious: No
  Sender: FDA-Public Use
  Company Number: US-SHIRE-US201942144

PATIENT
  Age: 74 Year
  Sex: Male
  Weight: 70.75 kg

DRUGS (3)
  1. XIIDRA [Suspect]
     Active Substance: LIFITEGRAST
     Dosage: 1 GTT DROPS, 2X/DAY:BID
     Route: 047
     Dates: start: 201909
  2. XIIDRA [Suspect]
     Active Substance: LIFITEGRAST
     Indication: DRY EYE
     Dosage: 5 PERCENT, 2X/DAY:BID
     Route: 047
     Dates: start: 20190911
  3. LATANOPROST. [Concomitant]
     Active Substance: LATANOPROST
     Indication: OCULAR DISCOMFORT
     Dosage: UNK

REACTIONS (6)
  - Product packaging issue [Not Recovered/Not Resolved]
  - Product use complaint [Unknown]
  - Product storage error [Not Recovered/Not Resolved]
  - Product dose omission [Unknown]
  - Eye irritation [Recovering/Resolving]
  - Vision blurred [Not Recovered/Not Resolved]

NARRATIVE: CASE EVENT DATE: 201909
